FAERS Safety Report 15228154 (Version 1)
Quarter: 2018Q3

REPORT INFORMATION
  Report Type: Spontaneous
  Country: GB (occurrence: GB)
  Receive Date: 20180801
  Receipt Date: 20180801
  Transmission Date: 20181010
  Serious: Yes (Life-Threatening)
  Sender: FDA-Public Use
  Company Number: PHHY2018GB060831

PATIENT
  Age: 27 Year
  Sex: Male
  Weight: 80.4 kg

DRUGS (3)
  1. DOXYCYCLINE. [Suspect]
     Active Substance: DOXYCYCLINE
     Indication: ANIMAL BITE
     Dosage: 200 MG, 4 DAYS
     Route: 048
     Dates: start: 20171229, end: 20180102
  2. CO?AMOXICLAV [Suspect]
     Active Substance: AMOXICILLIN\CLAVULANATE POTASSIUM
     Indication: ANIMAL BITE
     Dosage: 1875 MG, QD
     Route: 048
     Dates: start: 20171227, end: 20171228
  3. METRONIDAZOLE. [Suspect]
     Active Substance: METRONIDAZOLE
     Indication: ANIMAL BITE
     Dosage: 600 MG, 4 DAYS
     Route: 048
     Dates: start: 20171229, end: 20180102

REACTIONS (3)
  - Swelling face [Not Recovered/Not Resolved]
  - Dyspnoea [Not Recovered/Not Resolved]
  - Pharyngeal oedema [Not Recovered/Not Resolved]

NARRATIVE: CASE EVENT DATE: 20171229
